FAERS Safety Report 6019139-2 (Version None)
Quarter: 2008Q4

REPORT INFORMATION
  Report Type: 
  Country: None (occurrence: None)
  Receive Date: 20081224
  Receipt Date: 20081215
  Transmission Date: 20090506
  Serious: Yes (Death, Hospitalization)
  Sender: FDA-Public Use
  Company Number: US-JNJFOC-20081205167

PATIENT
  Age: 40 Year
  Sex: Male

DRUGS (6)
  1. IBUPROFEN TABLETS [Suspect]
     Indication: SUICIDE ATTEMPT
     Route: 048
  2. DIPHENHYDRAMINE HCL [Suspect]
     Indication: SUICIDE ATTEMPT
     Route: 048
  3. DEXTROMETHORPHAN HYDROBROMIDE [Suspect]
     Indication: SUICIDE ATTEMPT
     Route: 048
  4. DOXYLAMINE [Suspect]
     Indication: SUICIDE ATTEMPT
     Route: 048
  5. METHANOL [Suspect]
     Indication: SUICIDE ATTEMPT
     Route: 048
  6. SODIUM HYDROXIDE [Suspect]
     Indication: SUICIDE ATTEMPT
     Route: 048

REACTIONS (6)
  - ACUTE RESPIRATORY DISTRESS SYNDROME [None]
  - BURN OF INTERNAL ORGANS [None]
  - DISSEMINATED INTRAVASCULAR COAGULATION [None]
  - DRUG TOXICITY [None]
  - MULTI-ORGAN FAILURE [None]
  - SHOCK [None]
